FAERS Safety Report 13966191 (Version 2)
Quarter: 2018Q2

REPORT INFORMATION
  Report Type: Report from Study
  Country: BR (occurrence: BR)
  Receive Date: 20170913
  Receipt Date: 20180629
  Transmission Date: 20180711
  Serious: Yes (Hospitalization, Other)
  Sender: FDA-Public Use
  Company Number: PHHY2017BR101359

PATIENT
  Age: 90 Year
  Sex: Male
  Weight: 53 kg

DRUGS (8)
  1. EXELON PATCH [Suspect]
     Active Substance: RIVASTIGMINE
     Dosage: 1 DF,  (13.3 MG, QD PATCH 15 (CM2)) QD
     Route: 062
     Dates: start: 2017, end: 201802
  2. EXELON [Suspect]
     Active Substance: RIVASTIGMINE TARTRATE
     Indication: DEMENTIA ALZHEIMER^S TYPE
     Route: 065
  3. ALPRAZOLAM. [Concomitant]
     Active Substance: ALPRAZOLAM
     Indication: PRODUCT USED FOR UNKNOWN INDICATION
     Route: 065
  4. EXELON PATCH [Suspect]
     Active Substance: RIVASTIGMINE
     Indication: MEMORY IMPAIRMENT
     Dosage: 1 DF,  9.5 MG,  PATCH 10 (CM2) QD
     Route: 062
     Dates: start: 2015, end: 201709
  5. CLOPIDOGREL [Suspect]
     Active Substance: CLOPIDOGREL BISULFATE
     Indication: COAGULOPATHY
     Dosage: UNK
     Route: 048
     Dates: start: 20170318, end: 20170620
  6. CLOPIDOGREL [Suspect]
     Active Substance: CLOPIDOGREL BISULFATE
     Indication: CARDIAC DISORDER
  7. EXELON PATCH [Suspect]
     Active Substance: RIVASTIGMINE
     Indication: DEMENTIA ALZHEIMER^S TYPE
     Dosage: 1 DF, ( 4.6 MG, QD PATCH 5 (CM2) ) QD
     Route: 062
     Dates: start: 201303, end: 2015
  8. EXELON PATCH [Suspect]
     Active Substance: RIVASTIGMINE
     Dosage: 1 DF, ( 4.6 MG, QD PATCH 5 (CM2) ) QD
     Route: 062

REACTIONS (13)
  - Infarction [Not Recovered/Not Resolved]
  - Head discomfort [Not Recovered/Not Resolved]
  - Intestinal haemorrhage [Recovered/Resolved]
  - Cachexia [Not Recovered/Not Resolved]
  - Dementia Alzheimer^s type [Not Recovered/Not Resolved]
  - Diverticulitis [Not Recovered/Not Resolved]
  - Drug intolerance [Unknown]
  - Condition aggravated [Unknown]
  - Irritability [Not Recovered/Not Resolved]
  - Lack of application site rotation [Unknown]
  - Memory impairment [Unknown]
  - Nervousness [Not Recovered/Not Resolved]
  - Abdominal discomfort [Unknown]

NARRATIVE: CASE EVENT DATE: 20170318
